FAERS Safety Report 6557768-8 (Version None)
Quarter: 2010Q1

REPORT INFORMATION
  Report Type: 
  Country: None (occurrence: None)
  Receive Date: 20100129
  Receipt Date: 20100121
  Transmission Date: 20100710
  Serious: Yes (Hospitalization)
  Sender: FDA-Public Use
  Company Number: US-ASTRAZENECA-2010SE02949

PATIENT
  Age: 30690 Day
  Sex: Female
  Weight: 58.1 kg

DRUGS (4)
  1. CRESTOR [Suspect]
     Indication: BLOOD CHOLESTEROL
     Route: 048
     Dates: start: 20070101, end: 20091222
  2. VITAMIN E [Concomitant]
     Route: 048
  3. ASPIRIN [Concomitant]
     Route: 048
  4. TYLENOL-500 [Concomitant]
     Route: 048

REACTIONS (1)
  - MYOCARDIAL INFARCTION [None]
